FAERS Safety Report 4772053-2 (Version None)
Quarter: 2005Q3

REPORT INFORMATION
  Report Type: 
  Country: None (occurrence: None)
  Receive Date: 20050916
  Receipt Date: 20050826
  Transmission Date: 20060218
  Serious: Yes (Hospitalization)
  Sender: FDA-Public Use
  Company Number: JP-ABBOTT-05P-087-0309881-00

PATIENT
  Sex: Male

DRUGS (2)
  1. KLARICID [Suspect]
     Indication: UPPER RESPIRATORY TRACT INFLAMMATION
     Route: 048
     Dates: start: 20050823, end: 20050826
  2. PARACETAMOL [Concomitant]
     Indication: ANTIPYRESIS
     Route: 048

REACTIONS (3)
  - ABASIA [None]
  - DYSSTASIA [None]
  - MYALGIA [None]
